FAERS Safety Report 5714279-7 (Version None)
Quarter: 2008Q2

REPORT INFORMATION
  Report Type: 
  Country: None (occurrence: None)
  Receive Date: 20080421
  Receipt Date: 20080408
  Transmission Date: 20081010
  Serious: Yes (Other)
  Sender: FDA-Public Use
  Company Number: 8031684

PATIENT

DRUGS (1)
  1. KEPPRA [Suspect]

REACTIONS (1)
  - ILEOSTOMY [None]
